FAERS Safety Report 6511201-0 (Version None)
Quarter: 2009Q4

REPORT INFORMATION
  Report Type: 
  Country: None (occurrence: None)
  Receive Date: 20091222
  Receipt Date: 20090225
  Transmission Date: 20100525
  Serious: No
  Sender: FDA-Public Use
  Company Number: US-ASTRAZENECA-2009UW05282

PATIENT
  Age: 47 Year
  Sex: Female
  Weight: 69.9 kg

DRUGS (1)
  1. CRESTOR [Suspect]
     Dosage: UNKNOWN
     Route: 048

REACTIONS (1)
  - INCREASED APPETITE [None]
